FAERS Safety Report 9169243 (Version 1)
Quarter: 2013Q1

REPORT INFORMATION
  Report Type: Spontaneous
  Country: JP (occurrence: JP)
  Receive Date: 20130318
  Receipt Date: 20130318
  Transmission Date: 20140127
  Serious: Yes (Other)
  Sender: FDA-Public Use
  Company Number: JP-PFIZER INC-2013062701

PATIENT
  Age: 73 Year
  Sex: Female

DRUGS (8)
  1. LYRICA [Suspect]
     Indication: BACK PAIN
     Dosage: 75 MG, 1X/DAY (BEFORE BEDTIME)
     Route: 048
     Dates: start: 20130110, end: 20130111
  2. BONALON [Concomitant]
     Dosage: 35 MG DAILY
     Dates: start: 20121212
  3. BAYASPIRIN [Concomitant]
     Indication: THROMBOSIS PROPHYLAXIS
     Dosage: UNK
  4. PRORENAL [Concomitant]
     Indication: RAYNAUD^S PHENOMENON
     Dosage: UNK
  5. JUVELA SOFT [Concomitant]
     Indication: RAYNAUD^S PHENOMENON
  6. THYRADIN-S [Concomitant]
  7. NORVASC [Concomitant]
     Indication: BLOOD PRESSURE MANAGEMENT
  8. ARICEPT [Concomitant]
     Dosage: UNK
     Dates: start: 201210

REACTIONS (9)
  - Dementia [Unknown]
  - Spinal osteoarthritis [Unknown]
  - Eyelid ptosis [Unknown]
  - Eye swelling [Unknown]
  - Face oedema [Not Recovered/Not Resolved]
  - Visual impairment [Unknown]
  - Dyspnoea [Unknown]
  - Gait disturbance [Unknown]
  - Dizziness [Recovered/Resolved]
